FAERS Safety Report 7554957-0 (Version None)
Quarter: 2011Q2

REPORT INFORMATION
  Report Type: 
  Country: None (occurrence: None)
  Receive Date: 20110617
  Receipt Date: 20110608
  Transmission Date: 20111010
  Serious: Yes (Other)
  Sender: FDA-Public Use
  Company Number: US-ASTRAZENECA-2011SE34940

PATIENT
  Age: 79 Year
  Sex: Male

DRUGS (6)
  1. VENLAFAXINE [Suspect]
     Route: 048
  2. QUETIAPINE [Suspect]
     Indication: AGITATION
     Route: 048
  3. QUETIAPINE [Suspect]
     Indication: DELUSION
     Route: 048
  4. DONEPEZIL HCL [Suspect]
     Indication: DEMENTIA
  5. VENLAFAXINE [Suspect]
     Route: 048
  6. MIRTAZAPINE [Suspect]
     Indication: POOR QUALITY SLEEP

REACTIONS (1)
  - SEROTONIN SYNDROME [None]
